FAERS Safety Report 4855506-8 (Version None)
Quarter: 2005Q4

REPORT INFORMATION
  Report Type: 
  Country: None (occurrence: None)
  Receive Date: 20051216
  Receipt Date: 20051116
  Transmission Date: 20060501
  Serious: Yes (Other)
  Sender: FDA-Public Use
  Company Number: RO-NOVOPROD-249225

PATIENT
  Age: 71 Year
  Sex: Female
  Weight: 55 kg

DRUGS (6)
  1. ACTRAPID [Suspect]
     Indication: ULCER
     Dosage: 10 IU, SINGLE
     Route: 042
     Dates: start: 20050921, end: 20050921
  2. NIZATIDINE [Concomitant]
     Indication: ULCER
     Dosage: 1 TAB, QD
     Dates: start: 20030913, end: 20051003
  3. AMPICILLIN SODIUM [Concomitant]
     Indication: ULCER
     Dosage: 1 TAB, QD
     Dates: start: 20050913, end: 20050920
  4. INDOMETHACIN [Concomitant]
     Indication: ULCER
     Dosage: UNK, UNK
     Dates: start: 20050919, end: 20050920
  5. METOCLOPRAMIDE [Concomitant]
     Indication: ULCER
     Dosage: 3 TAB, QD
     Dates: start: 20050921, end: 20051003
  6. AMINOPHYLLINE [Concomitant]
     Indication: ULCER
     Dosage: UNK, UNK
     Dates: start: 20050914, end: 20050919

REACTIONS (7)
  - CONVULSION [None]
  - DYSPNOEA [None]
  - HYPERHIDROSIS [None]
  - HYPERTENSION [None]
  - NERVOUSNESS [None]
  - VERTIGO [None]
  - VOMITING [None]
